FAERS Safety Report 8398925-8 (Version None)
Quarter: 2012Q2

REPORT INFORMATION
  Report Type: 
  Country: None (occurrence: None)
  Receive Date: 20120531
  Receipt Date: 20120522
  Transmission Date: 20120825
  Serious: Yes (Other)
  Sender: FDA-Public Use
  Company Number: US-ASTRAZENECA-2010SE22244

PATIENT
  Age: 983 Month
  Sex: Female
  Weight: 50.8 kg

DRUGS (4)
  1. ATENOLOL [Concomitant]
  2. SPIRIVA [Concomitant]
  3. TRIAMTERENE AND HYDROCHLOROTHIAZIDE [Concomitant]
  4. SYMBICORT [Suspect]
     Indication: CHRONIC OBSTRUCTIVE PULMONARY DISEASE
     Route: 055
     Dates: start: 20100301

REACTIONS (5)
  - MALAISE [None]
  - HEADACHE [None]
  - LUNG NEOPLASM MALIGNANT [None]
  - ORAL MUCOSAL EXFOLIATION [None]
  - DRUG HYPERSENSITIVITY [None]
